FAERS Safety Report 4333972-4 (Version None)
Quarter: 2004Q2

REPORT INFORMATION
  Report Type: 
  Country: None (occurrence: None)
  Receive Date: 20040402
  Receipt Date: 20040323
  Transmission Date: 20050107
  Serious: Yes (Hospitalization)
  Sender: FDA-Public Use
  Company Number: 2004020244

PATIENT
  Age: 45 Year
  Sex: Female
  Weight: 85 kg

DRUGS (9)
  1. MINIPRESS XL [Suspect]
     Indication: BLOOD POTASSIUM INCREASED
     Dosage: 2 TABLETS, BID , ORAL
     Route: 048
     Dates: start: 20040301
  2. MINIPRESS XL [Suspect]
     Indication: BLOOD PRESSURE INCREASED
     Dosage: 2 TABLETS, BID , ORAL
     Route: 048
     Dates: start: 20040301
  3. INSULIN HUMAN [Concomitant]
  4. ISOPHANE INSULIN [Concomitant]
  5. NATEGLINIDE [Concomitant]
  6. ATENOLOL [Concomitant]
  7. ALLOPURINOL [Concomitant]
  8. VITAMINS W/AMINO ACIDS [Concomitant]
  9. ASPIRIN [Concomitant]

REACTIONS (11)
  - ARTHRALGIA [None]
  - BALANCE DISORDER [None]
  - BLOOD POTASSIUM INCREASED [None]
  - BLOOD PRESSURE INCREASED [None]
  - EYE DISORDER [None]
  - LOWER LIMB DEFORMITY [None]
  - NEPHROLITHIASIS [None]
  - NEUROPATHIC ARTHROPATHY [None]
  - PROTEIN TOTAL INCREASED [None]
  - RENAL DISORDER [None]
  - URINARY TRACT INFECTION [None]
